FAERS Safety Report 23522655 (Version 1)
Quarter: 2024Q1

REPORT INFORMATION
  Report Type: Spontaneous
  Country: CN (occurrence: CN)
  Receive Date: 20240214
  Receipt Date: 20240214
  Transmission Date: 20240410
  Serious: Yes (Life-Threatening)
  Sender: FDA-Public Use
  Company Number: None

PATIENT
  Age: 41 Year
  Sex: Male

DRUGS (3)
  1. ONIVYDE [Suspect]
     Active Substance: IRINOTECAN HYDROCHLORIDE
     Indication: Malignant neoplasm of ampulla of Vater
     Dosage: 129 MG, QD
     Route: 042
     Dates: start: 20240110, end: 20240110
  2. FLUOROURACIL [Suspect]
     Active Substance: FLUOROURACIL
     Indication: Malignant neoplasm of ampulla of Vater
     Dosage: 4.25 G, QD
     Route: 042
     Dates: start: 20240110, end: 20240110
  3. LEVOLEUCOVORIN CALCIUM [Concomitant]
     Active Substance: LEVOLEUCOVORIN CALCIUM
     Indication: Malignant neoplasm of ampulla of Vater
     Dosage: 350 MG, QD
     Route: 042
     Dates: start: 20240109, end: 20240109

REACTIONS (3)
  - Granulocyte count decreased [Recovering/Resolving]
  - White blood cell count decreased [Recovering/Resolving]
  - Myelosuppression [Recovering/Resolving]

NARRATIVE: CASE EVENT DATE: 20240129
